FAERS Safety Report 12519231 (Version 1)
Quarter: 2016Q2

REPORT INFORMATION
  Report Type: Report from Study
  Country: US (occurrence: US)
  Receive Date: 20160630
  Receipt Date: 20160630
  Transmission Date: 20160815
  Serious: Yes (Other)
  Sender: FDA-Public Use
  Company Number: US-AMGEN-USASL2016083460

PATIENT
  Age: 76 Year
  Sex: Male

DRUGS (1)
  1. ENBREL [Suspect]
     Active Substance: ETANERCEPT
     Indication: RHEUMATOID ARTHRITIS
     Dosage: UNK UNK, UNK
     Route: 065
     Dates: start: 2005

REACTIONS (7)
  - Corneal transplant [Unknown]
  - Cataract operation [Unknown]
  - Muscular weakness [Unknown]
  - Arthritis [Unknown]
  - Paraesthesia [Unknown]
  - Urinary retention [Unknown]
  - Herpes zoster [Unknown]
